FAERS Safety Report 8932059 (Version 1)
Quarter: 2012Q4

REPORT INFORMATION
  Report Type: 
  Country: US (occurrence: US)
  Receive Date: 20121128
  Receipt Date: 20121128
  Transmission Date: 20130627
  Serious: Yes (Other)
  Sender: FDA-Public Use
  Company Number: US-JNJFOC-20121002944

PATIENT
  Age: 66 Year
  Sex: Female

DRUGS (4)
  1. XARELTO [Suspect]
     Indication: ANTICOAGULANT THERAPY
     Route: 048
     Dates: start: 20120720, end: 20120907
  2. OMEPRAZOLE [Concomitant]
     Indication: DYSPEPSIA
     Dates: start: 20120815
  3. METFORMIN [Concomitant]
     Indication: DIABETES MELLITUS
     Dates: start: 20120815
  4. DILTIAZEM [Concomitant]
     Indication: BLOOD PRESSURE
     Dates: start: 20120815

REACTIONS (1)
  - Drug dose omission [Recovered/Resolved]
